FAERS Safety Report 20028002 (Version 1)
Quarter: 2021Q4

REPORT INFORMATION
  Report Type: Spontaneous
  Country: US (occurrence: US)
  Receive Date: 20211103
  Receipt Date: 20211103
  Transmission Date: 20220303
  Serious: Yes (Other)
  Sender: FDA-Public Use
  Company Number: US-Hikma Pharmaceuticals USA Inc.-US-H14001-21-04581

PATIENT
  Age: 4 Month
  Sex: Male

DRUGS (7)
  1. MORPHINE [Suspect]
     Active Substance: MORPHINE
     Indication: Analgesic therapy
     Dosage: UNKNOWN
     Route: 051
  2. HYDROMORPHONE [Suspect]
     Active Substance: HYDROMORPHONE
     Indication: Analgesic therapy
     Dosage: UNKNOWN
     Route: 051
  3. METHADONE [Suspect]
     Active Substance: METHADONE HYDROCHLORIDE
     Indication: Analgesic therapy
     Dosage: UNKNOWN
  4. LORAZEPAM [Suspect]
     Active Substance: LORAZEPAM
     Indication: Product used for unknown indication
     Dosage: UNKNOWN
  5. GLYCERIN [Concomitant]
     Active Substance: GLYCERIN
     Indication: Constipation
  6. DOCUSATE [Concomitant]
     Active Substance: DOCUSATE
     Indication: Constipation
     Dosage: UNKNOWN
     Route: 065
  7. METHYLNALTREXONE [Concomitant]
     Active Substance: METHYLNALTREXONE
     Dosage: UNKNOWN
     Route: 065

REACTIONS (4)
  - Constipation [Recovered/Resolved]
  - Obstruction [Recovered/Resolved]
  - Abdominal distension [Recovered/Resolved]
  - Eating disorder [Recovered/Resolved]
